FAERS Safety Report 8541224-1 (Version None)
Quarter: 2012Q3

REPORT INFORMATION
  Report Type: 
  Country: None (occurrence: None)
  Receive Date: 20120726
  Receipt Date: 20120719
  Transmission Date: 20120928
  Serious: Yes (Life-Threatening)
  Sender: FDA-Public Use
  Company Number: BR-PFIZER INC-2012174819

PATIENT
  Age: 24 Year
  Sex: Male

DRUGS (1)
  1. VARENICLINE TARTRATE [Suspect]
     Indication: SMOKING CESSATION THERAPY
     Dosage: ONE TABLET EVERY 12 HOURS
     Route: 048
     Dates: start: 20120606, end: 20120619

REACTIONS (5)
  - STRESS [None]
  - HYPERSENSITIVITY [None]
  - WOUND [None]
  - VOMITING [None]
  - DIZZINESS [None]
